FAERS Safety Report 9812271 (Version 1)
Quarter: 2014Q1

REPORT INFORMATION
  Report Type: Report from Study
  Country: US (occurrence: US)
  Receive Date: 20140113
  Receipt Date: 20140113
  Transmission Date: 20141002
  Serious: Yes (Other)
  Sender: FDA-Public Use
  Company Number: US-ROCHE-1332470

PATIENT
  Sex: 0

DRUGS (3)
  1. RITUXIMAB [Suspect]
     Indication: CHRONIC LYMPHOCYTIC LEUKAEMIA RECURRENT
     Dosage: DAY 1-3 PER CYCLE REPEATED EVERY 28 DAYS
     Route: 065
  2. DASATINIB [Suspect]
     Indication: CHRONIC LYMPHOCYTIC LEUKAEMIA RECURRENT
     Dosage: DAYS 1-14
     Route: 065
  3. FLUDARABINE [Suspect]
     Indication: CHRONIC LYMPHOCYTIC LEUKAEMIA RECURRENT
     Route: 065

REACTIONS (8)
  - Platelet count abnormal [Unknown]
  - Neutropenia [Unknown]
  - Fatigue [Unknown]
  - Dyspnoea [Unknown]
  - Pleural effusion [Unknown]
  - Haemorrhage [Unknown]
  - Pyrexia [Unknown]
  - Infection [Unknown]
